FAERS Safety Report 11452839 (Version 1)
Quarter: 2015Q3

REPORT INFORMATION
  Report Type: Spontaneous
  Country: US (occurrence: US)
  Receive Date: 20150903
  Receipt Date: 20150903
  Transmission Date: 20151125
  Serious: Yes (Hospitalization, Other)
  Sender: FDA-Public Use
  Company Number: US-ROCHE-1070358

PATIENT
  Sex: Female

DRUGS (6)
  1. RIBAVIRIN. [Suspect]
     Active Substance: RIBAVIRIN
     Indication: HEPATITIS C
     Route: 065
     Dates: start: 2008
  2. RIBAVIRIN. [Suspect]
     Active Substance: RIBAVIRIN
     Dosage: DIVIDED DOSES 600/400
     Route: 065
     Dates: start: 20120210
  3. RIBAVIRIN. [Suspect]
     Active Substance: RIBAVIRIN
     Route: 065
  4. PEGASYS [Suspect]
     Active Substance: PEGINTERFERON ALFA-2A
     Route: 065
     Dates: start: 20120210
  5. PEGASYS [Suspect]
     Active Substance: PEGINTERFERON ALFA-2A
     Indication: HEPATITIS C
     Route: 058
     Dates: start: 2008
  6. TELAPREVIR [Suspect]
     Active Substance: TELAPREVIR
     Indication: CHRONIC HEPATITIS C
     Route: 065
     Dates: start: 20120210

REACTIONS (9)
  - Pancreatitis [Unknown]
  - Decreased appetite [Unknown]
  - Haemoglobin decreased [Unknown]
  - Dysgeusia [Unknown]
  - Pruritus [Not Recovered/Not Resolved]
  - Headache [Unknown]
  - Alopecia [Not Recovered/Not Resolved]
  - Pain in extremity [Unknown]
  - Restlessness [Unknown]
